FAERS Safety Report 23275533 (Version 1)
Quarter: 2023Q4

REPORT INFORMATION
  Report Type: Spontaneous
  Country: FR (occurrence: FR)
  Receive Date: 20231208
  Receipt Date: 20231208
  Transmission Date: 20240110
  Serious: Yes (Death)
  Sender: FDA-Public Use
  Company Number: None

PATIENT
  Age: 35 Year
  Sex: Male

DRUGS (10)
  1. MIRTAZAPINE [Suspect]
     Active Substance: MIRTAZAPINE
     Dosage: UNK
     Dates: end: 20231013
  2. ZOPICLONE [Suspect]
     Active Substance: ZOPICLONE
     Dosage: UNK
     Dates: end: 20231013
  3. HEROIN [Suspect]
     Active Substance: DIAMORPHINE
     Dosage: UNK
     Dates: end: 20231013
  4. ALCOHOL [Suspect]
     Active Substance: ALCOHOL
     Dosage: UNK
     Dates: end: 20231013
  5. COCAINE [Suspect]
     Active Substance: COCAINE
     Dosage: UNK
     Dates: end: 20231013
  6. CYAMEMAZINE [Suspect]
     Active Substance: CYAMEMAZINE
     Dosage: UNK
     Dates: end: 20231013
  7. CANNABIS SATIVA SUBSP. INDICA TOP [Suspect]
     Active Substance: CANNABIS SATIVA SUBSP. INDICA TOP
     Dosage: UNK
     Dates: end: 20231013
  8. SERTRALINE HYDROCHLORIDE [Suspect]
     Active Substance: SERTRALINE HYDROCHLORIDE
     Dosage: UNK
     Dates: end: 20231013
  9. VALPROIC ACID [Suspect]
     Active Substance: VALPROIC ACID
     Dosage: UNK
     Dates: end: 20231013
  10. OXAZEPAM [Suspect]
     Active Substance: OXAZEPAM
     Dosage: UNK
     Dates: end: 20231013

REACTIONS (2)
  - Asphyxia [Fatal]
  - Poisoning [Fatal]
